FAERS Safety Report 8106671-0 (Version None)
Quarter: 2012Q1

REPORT INFORMATION
  Report Type: 
  Country: None (occurrence: None)
  Receive Date: 20120130
  Receipt Date: 20120117
  Transmission Date: 20120608
  Serious: Yes (Disabling)
  Sender: FDA-Public Use
  Company Number: TCI2012A00194

PATIENT
  Sex: Male

DRUGS (5)
  1. METFORMIN HYDROCHLORIDE [Concomitant]
  2. ACTOS [Suspect]
     Indication: DIABETES MELLITUS
     Dosage: 30 MG (30 MG, 1 D)
     Route: 048
     Dates: start: 20091212
  3. GLACTIV (SITAGLIPTIN PHOSPHATE) [Suspect]
     Dosage: 50 MG (50 MG, 1 D)
     Route: 048
     Dates: start: 20100311
  4. HERBAL EXTRACT NO [Concomitant]
  5. MIGLITOL [Concomitant]

REACTIONS (1)
  - INTERSTITIAL LUNG DISEASE [None]
